FAERS Safety Report 26043266 (Version 3)
Quarter: 2025Q4

REPORT INFORMATION
  Report Type: Spontaneous
  Country: JP (occurrence: JP)
  Receive Date: 20251113
  Receipt Date: 20251120
  Transmission Date: 20260117
  Serious: Yes (Hospitalization)
  Sender: BIOMARIN
  Company Number: JP-BIOMARINAP-JP-2025-170027

PATIENT
  Age: 5 Year
  Sex: Male
  Weight: 16 kg

DRUGS (1)
  1. VOXZOGO [Suspect]
     Active Substance: VOSORITIDE
     Indication: Osteochondrodysplasia
     Dosage: 15 MICROGRAM/KILOGRAM, QD
     Dates: start: 20230704

REACTIONS (4)
  - Asthma [Recovered/Resolved]
  - Infection [Recovered/Resolved]
  - Product storage error [Unknown]
  - Off label use [Unknown]

NARRATIVE: CASE EVENT DATE: 20251108
